FAERS Safety Report 9851903 (Version 2)
Quarter: 2014Q1

REPORT INFORMATION
  Report Type: Spontaneous
  Country: CH (occurrence: CH)
  Receive Date: 20140129
  Receipt Date: 20140129
  Transmission Date: 20141002
  Serious: Yes (Death, Other)
  Sender: FDA-Public Use
  Company Number: CH-ELI_LILLY_AND_COMPANY-CH201312006571

PATIENT
  Age: 61 Year
  Sex: Female
  Weight: 55 kg

DRUGS (5)
  1. ALIMTA [Suspect]
     Indication: LUNG NEOPLASM MALIGNANT
     Dosage: 500 MG, CYCLICAL
     Route: 042
  2. ALIMTA [Suspect]
     Dosage: 616 MG, CYCLICAL
     Route: 042
     Dates: start: 20131212, end: 20131225
  3. CISPLATINE [Suspect]
     Indication: LUNG NEOPLASM MALIGNANT
     Dosage: UNK, UNKNOWN
     Route: 042
  4. CISPLATINE [Suspect]
     Dosage: 81 MG, CYCLICAL (21 DAYS)
     Route: 042
     Dates: start: 20131212, end: 20131225
  5. ZYPREXA [Concomitant]
     Dosage: 2.5 MG, QD
     Route: 048

REACTIONS (3)
  - Renal failure [Fatal]
  - Pancytopenia [Fatal]
  - Escherichia bacteraemia [Unknown]
